FAERS Safety Report 5953921-2 (Version None)
Quarter: 2008Q4

REPORT INFORMATION
  Report Type: 
  Country: None (occurrence: None)
  Receive Date: 20081114
  Receipt Date: 20081103
  Transmission Date: 20090506
  Serious: Yes (Other)
  Sender: FDA-Public Use
  Company Number: CA-PFIZER INC-2008085216

PATIENT
  Age: 78 Year
  Sex: Male

DRUGS (6)
  1. LYRICA [Suspect]
     Indication: SPINAL COLUMN STENOSIS
     Route: 048
     Dates: start: 20080101, end: 20080101
  2. NEURONTIN [Suspect]
     Indication: SPINAL COLUMN STENOSIS
     Route: 048
     Dates: start: 20081001
  3. MICARDIS [Concomitant]
  4. LIPITOR [Concomitant]
  5. ATENOLOL [Concomitant]
  6. WARFARIN SODIUM [Concomitant]

REACTIONS (4)
  - HEARING IMPAIRED [None]
  - OPTIC ATROPHY [None]
  - PAIN [None]
  - VISION BLURRED [None]
